FAERS Safety Report 4512462-X (Version None)
Quarter: 2004Q4

REPORT INFORMATION
  Report Type: 
  Country: None (occurrence: None)
  Receive Date: 20041008
  Receipt Date: 20040805
  Transmission Date: 20050328
  Serious: Yes (Hospitalization)
  Sender: FDA-Public Use
  Company Number: 376910

PATIENT
  Sex: Male

DRUGS (4)
  1. FUZEON [Suspect]
     Indication: DRUG USE FOR UNKNOWN INDICATION
     Dosage: 1 DOSE FORM    1 PER DAY
     Dates: start: 20040515
  2. ATAZANAVIR (ATAZANAVIR) [Concomitant]
  3. TRIZIVIR [Concomitant]
  4. NORVIR [Concomitant]

REACTIONS (7)
  - ANOREXIA [None]
  - CHILLS [None]
  - DEPRESSION [None]
  - INSOMNIA [None]
  - MALAISE [None]
  - MUSCULAR WEAKNESS [None]
  - PAIN [None]
